FAERS Safety Report 9957761 (Version 1)
Quarter: 2014Q1

REPORT INFORMATION
  Report Type: Report from Study
  Country: US (occurrence: US)
  Receive Date: 20140304
  Receipt Date: 20140304
  Transmission Date: 20141002
  Serious: No
  Sender: FDA-Public Use
  Company Number: US-ABBVIE-13P-163-1095859-00

PATIENT
  Age: 60 Year
  Sex: Female
  Weight: 62.65 kg

DRUGS (6)
  1. HUMIRA [Suspect]
     Indication: RHEUMATOID ARTHRITIS
     Dates: start: 20130402
  2. BUTALBITAL [Concomitant]
     Indication: HEADACHE
  3. CALCIUM [Concomitant]
     Indication: MINERAL SUPPLEMENTATION
  4. MOBIC [Concomitant]
     Indication: PAIN
  5. MULTIVITAMINS [Concomitant]
     Indication: VITAMIN SUPPLEMENTATION
  6. TRAMADOL [Concomitant]
     Indication: PAIN

REACTIONS (4)
  - Sinus disorder [Recovered/Resolved]
  - Nasopharyngitis [Recovered/Resolved]
  - Pyrexia [Recovered/Resolved]
  - Cough [Recovered/Resolved]
